FAERS Safety Report 5196512-6 (Version None)
Quarter: 2006Q4

REPORT INFORMATION
  Report Type: 
  Country: None (occurrence: None)
  Receive Date: 20061227
  Receipt Date: 20061215
  Transmission Date: 20070319
  Serious: Yes (Disabling)
  Sender: FDA-Public Use
  Company Number: 440001M06JPN

PATIENT
  Sex: Male

DRUGS (1)
  1. SEROSTIM [Suspect]
     Indication: WEIGHT DECREASED
     Dosage: 5 MG, 1 IN 1 DAYS, SUBCUTANEOUS
     Route: 058

REACTIONS (2)
  - ABASIA [None]
  - ARTHRITIS [None]
